FAERS Safety Report 4369017-X (Version None)
Quarter: 2004Q2

REPORT INFORMATION
  Report Type: 
  Country: None (occurrence: None)
  Receive Date: 20040602
  Receipt Date: 20040602
  Transmission Date: 20050107
  Serious: Yes (Hospitalization)
  Sender: FDA-Public Use
  Company Number: None

PATIENT
  Sex: Male
  Weight: 77.1115 kg

DRUGS (9)
  1. ACTOS [Suspect]
     Dosage: 45 MG DAILY PO
     Route: 048
  2. PLACEBO [Suspect]
  3. ZESTRIL [Concomitant]
  4. EXELON [Concomitant]
  5. CENTRUM MULT [Concomitant]
  6. XALATAX [Concomitant]
  7. TIMOPTIC [Concomitant]
  8. ALLOPURINOL [Concomitant]
  9. FERROGRAD [Concomitant]

REACTIONS (3)
  - DEHYDRATION [None]
  - GASTROINTESTINAL DISORDER [None]
  - VIRAL INFECTION [None]
